FAERS Safety Report 14498536 (Version 1)
Quarter: 2018Q1

REPORT INFORMATION
  Report Type: Spontaneous
  Country: JP (occurrence: JP)
  Receive Date: 20180207
  Receipt Date: 20180207
  Transmission Date: 20180509
  Serious: Yes (Death, Other)
  Sender: FDA-Public Use
  Company Number: JP-PFIZER INC-2018050716

PATIENT
  Age: 67 Year
  Sex: Female
  Weight: 53 kg

DRUGS (20)
  1. CELECOX [Concomitant]
     Active Substance: CELECOXIB
     Dosage: UNK
  2. ELPLAT [Suspect]
     Active Substance: OXALIPLATIN
     Dosage: 100 MG, 1X/DAY (MG/BODY)
     Route: 041
     Dates: end: 20180117
  3. LEVOFOLINATE YAKULT [Suspect]
     Active Substance: LEVOLEUCOVORIN CALCIUM
     Indication: PANCREATIC CARCINOMA
     Dosage: 302.2 MG, 1X/DAY (MG/BODY)
     Route: 041
     Dates: start: 20171106, end: 20180117
  4. CALONAL [Concomitant]
     Active Substance: ACETAMINOPHEN
     Dosage: UNK
  5. BISOPROLOL [Concomitant]
     Active Substance: BISOPROLOL
     Dosage: UNK
  6. LOSARTAN POTASSIUM. [Concomitant]
     Active Substance: LOSARTAN POTASSIUM
     Dosage: UNK
  7. FUROSEMIDE. [Concomitant]
     Active Substance: FUROSEMIDE
     Dosage: UNK
  8. PRIMPERAN [Concomitant]
     Active Substance: METOCLOPRAMIDE HYDROCHLORIDE
     Dosage: UNK
  9. 5-FU [Suspect]
     Active Substance: FLUOROURACIL
     Dosage: UNK, 1X/DAY
     Route: 040
     Dates: start: 20180117, end: 20180117
  10. CAMPTO [Suspect]
     Active Substance: IRINOTECAN
     Indication: PANCREATIC CARCINOMA
     Dosage: 272 MG, 1X/DAY (MG/BODY)
     Route: 041
     Dates: start: 20171106, end: 20171106
  11. ELPLAT [Suspect]
     Active Substance: OXALIPLATIN
     Indication: PANCREATIC CARCINOMA
     Dosage: 128.4 MG, 1X/DAY (MG/BODY)
     Route: 041
     Dates: start: 20171106, end: 20171106
  12. NEXIUM [Concomitant]
     Active Substance: ESOMEPRAZOLE MAGNESIUM
     Dosage: UNK
  13. 5-FU [Suspect]
     Active Substance: FLUOROURACIL
     Dosage: 3000 MG, 1X/DAY (MG/BODY/D1-2 (1985.4 MG/M2/D1-2)
     Route: 041
     Dates: end: 20180117
  14. 5-FU [Suspect]
     Active Substance: FLUOROURACIL
     Dosage: 3626.4 MG, 1X/DAY (MG/BODY/D1-2 (2400 MG/M2/D1-2)
     Route: 041
     Dates: start: 20171106, end: 20171106
  15. LOPERAMIDE HYDROCHLORIDE. [Concomitant]
     Active Substance: LOPERAMIDE HYDROCHLORIDE
     Dosage: UNK
     Route: 048
  16. MAGMITT [Concomitant]
     Active Substance: MAGNESIUM OXIDE
     Dosage: UNK
     Route: 048
  17. LYRICA [Concomitant]
     Active Substance: PREGABALIN
     Dosage: UNK
  18. CAMPTO [Suspect]
     Active Substance: IRINOTECAN
     Dosage: 226.7 MG, 1X/DAY (MG/BODY)
     Route: 041
  19. 5-FU [Suspect]
     Active Substance: FLUOROURACIL
     Indication: PANCREATIC CARCINOMA
     Dosage: 604.4 MG, 1X/DAY (MG/BODY)
     Route: 040
     Dates: start: 20171106, end: 20171106
  20. PITAVASTATIN. [Concomitant]
     Active Substance: PITAVASTATIN CALCIUM
     Dosage: UNK

REACTIONS (7)
  - Tumour lysis syndrome [Fatal]
  - Neoplasm progression [Unknown]
  - Toxic encephalopathy [Fatal]
  - Multiple organ dysfunction syndrome [Unknown]
  - Bone marrow failure [Unknown]
  - Cholinergic syndrome [Unknown]
  - Gastrointestinal disorder [Unknown]

NARRATIVE: CASE EVENT DATE: 20180118
